FAERS Safety Report 6801427-0 (Version None)
Quarter: 2010Q2

REPORT INFORMATION
  Report Type: 
  Country: None (occurrence: None)
  Receive Date: 20100629
  Receipt Date: 20100618
  Transmission Date: 20101027
  Serious: Yes (Death)
  Sender: FDA-Public Use
  Company Number: B0662711A

PATIENT
  Age: 47 Year
  Sex: Female

DRUGS (7)
  1. BUPROPION HCL [Suspect]
     Route: 065
  2. ALCOHOL [Suspect]
  3. OXYMORPHONE [Suspect]
     Route: 065
  4. METHAMPHETAMINE HYDROCHLORIDE [Suspect]
  5. TRAZODONE HYDROCHLORIDE [Suspect]
  6. FLUOXETINE [Suspect]
     Route: 065
  7. SERTRALINE HCL [Suspect]
     Route: 065

REACTIONS (3)
  - ACCIDENTAL POISONING [None]
  - DRUG TOXICITY [None]
  - PULMONARY CONGESTION [None]
